FAERS Safety Report 25077457 (Version 1)
Quarter: 2025Q1

REPORT INFORMATION
  Report Type: Report from Study
  Country: PK (occurrence: PK)
  Receive Date: 20250314
  Receipt Date: 20250314
  Transmission Date: 20250409
  Serious: Yes (Death)
  Sender: ROCHE
  Company Number: PK-ROCHE-10000146648

PATIENT
  Age: 62 Year
  Sex: Female

DRUGS (1)
  1. AVASTIN [Suspect]
     Active Substance: BEVACIZUMAB
     Indication: Neuroendocrine carcinoma of the skin
     Route: 042
     Dates: start: 20241017, end: 20241107

REACTIONS (2)
  - Asthenia [Unknown]
  - Disease progression [Fatal]

NARRATIVE: CASE EVENT DATE: 20250131
